FAERS Safety Report 5779052-2 (Version None)
Quarter: 2008Q2

REPORT INFORMATION
  Report Type: 
  Country: None (occurrence: None)
  Receive Date: 20080613
  Receipt Date: 20071011
  Transmission Date: 20081010
  Serious: Yes (Other)
  Sender: FDA-Public Use
  Company Number: PHEH2007US12715

PATIENT
  Age: 81 Year
  Sex: Male

DRUGS (5)
  1. EXELON [Suspect]
     Indication: DEMENTIA ALZHEIMER'S TYPE
     Dosage: 1.5 MG, ORAL : 3 MG, BID, ORAL : 1.5 MG, BID, ORAL
     Route: 048
     Dates: start: 20070714, end: 20070718
  2. EXELON [Suspect]
     Indication: DEMENTIA ALZHEIMER'S TYPE
     Dosage: 1.5 MG, ORAL : 3 MG, BID, ORAL : 1.5 MG, BID, ORAL
     Route: 048
     Dates: start: 20070530
  3. EXELON [Suspect]
     Indication: DEMENTIA ALZHEIMER'S TYPE
     Dosage: 1.5 MG, ORAL : 3 MG, BID, ORAL : 1.5 MG, BID, ORAL
     Route: 048
     Dates: start: 20070719
  4. EXELON [Suspect]
     Dosage: 4.6 MG, TRANSDERMAL
     Route: 062
     Dates: start: 20070913, end: 20070922
  5. HUPERZINE A() [Suspect]

REACTIONS (5)
  - CONFUSIONAL STATE [None]
  - CONSTIPATION [None]
  - DECREASED ACTIVITY [None]
  - FAECALOMA [None]
  - RECTAL HAEMORRHAGE [None]
